FAERS Safety Report 14550512 (Version 6)
Quarter: 2018Q3

REPORT INFORMATION
  Report Type: Report from Study
  Country: None (occurrence: US)
  Receive Date: 20180219
  Receipt Date: 20180820
  Transmission Date: 20181010
  Serious: Yes (Other)
  Sender: FDA-Public Use
  Company Number: US-ABBVIE-18K-163-2256950-00

PATIENT
  Age: 56 Year
  Sex: Male

DRUGS (6)
  1. LOSARTAN POTASSIUM. [Concomitant]
     Active Substance: LOSARTAN POTASSIUM
     Indication: HYPERTENSION
  2. HUMIRA [Suspect]
     Active Substance: ADALIMUMAB
     Indication: PSORIATIC ARTHROPATHY
     Route: 058
     Dates: start: 2008
  3. AMLODIPINE [Concomitant]
     Active Substance: AMLODIPINE BESYLATE
     Indication: HYPERTENSION
  4. METOPROLOL. [Concomitant]
     Active Substance: METOPROLOL
     Indication: HYPERTENSION
  5. ATORVASTIN [Concomitant]
     Active Substance: ATORVASTATIN
     Indication: BLOOD CHOLESTEROL INCREASED
  6. HUMIRA [Suspect]
     Active Substance: ADALIMUMAB
     Indication: PSORIASIS

REACTIONS (17)
  - Ligament sprain [Not Recovered/Not Resolved]
  - Diverticulitis [Not Recovered/Not Resolved]
  - Haemorrhoids [Recovering/Resolving]
  - Sensitivity to weather change [Recovered/Resolved]
  - Joint swelling [Not Recovered/Not Resolved]
  - Influenza [Recovered/Resolved]
  - Pyrexia [Unknown]
  - Intestinal polyp [Recovered/Resolved]
  - Arthralgia [Not Recovered/Not Resolved]
  - Rectal haemorrhage [Recovered/Resolved]
  - Pain [Unknown]
  - Fall [Recovered/Resolved]
  - Hypertension [Unknown]
  - Drug ineffective [Not Recovered/Not Resolved]
  - Diabetes mellitus [Unknown]
  - Psoriasis [Unknown]
  - Osteoarthritis [Unknown]

NARRATIVE: CASE EVENT DATE: 2018
